FAERS Safety Report 14252275 (Version 1)
Quarter: 2017Q4

REPORT INFORMATION
  Report Type: Spontaneous
  Country: US (occurrence: US)
  Receive Date: 20171205
  Receipt Date: 20171205
  Transmission Date: 20180321
  Serious: Yes (Other)
  Sender: FDA-Public Use
  Company Number: US-NOVOPROD-573077

PATIENT
  Age: 53 Year
  Sex: Female
  Weight: 105.21 kg

DRUGS (1)
  1. XULTOPHY 100/3.6 [Suspect]
     Active Substance: INSULIN DEGLUDEC\LIRAGLUTIDE
     Indication: BLOOD GLUCOSE INCREASED
     Dosage: 16 U, QD
     Route: 058
     Dates: start: 20171111

REACTIONS (2)
  - Nausea [Unknown]
  - Chest pain [Recovered/Resolved]

NARRATIVE: CASE EVENT DATE: 20171111
